FAERS Safety Report 9698707 (Version 2)
Quarter: 2014Q2

REPORT INFORMATION
  Report Type: Spontaneous
  Country: US (occurrence: US)
  Receive Date: 20131120
  Receipt Date: 20140530
  Transmission Date: 20141212
  Serious: Yes (Death)
  Sender: FDA-Public Use
  Company Number: US-PFIZER INC-2013329868

PATIENT
  Age: 87 Year
  Sex: Male

DRUGS (3)
  1. INLYTA [Suspect]
     Indication: SQUAMOUS CELL CARCINOMA OF HEAD AND NECK
     Dosage: 5 MG, 2X/DAY
     Dates: start: 201308
  2. INLYTA [Suspect]
     Dosage: 5 MG, 2X/DAY
     Route: 048
     Dates: start: 201309, end: 20131029
  3. CETUXIMAB [Concomitant]
     Indication: SQUAMOUS CELL CARCINOMA OF HEAD AND NECK
     Dosage: UNK
     Dates: start: 20131022, end: 20131022

REACTIONS (3)
  - Disease progression [Fatal]
  - Squamous cell carcinoma of head and neck [Fatal]
  - Off label use [Unknown]
